FAERS Safety Report 5215478-3 (Version None)
Quarter: 2007Q1

REPORT INFORMATION
  Report Type: 
  Country: None (occurrence: None)
  Receive Date: 20070119
  Receipt Date: 20070119
  Transmission Date: 20070707
  Serious: Yes (Hospitalization, Disabling)
  Sender: FDA-Public Use
  Company Number: None

PATIENT
  Age: 53 Year
  Sex: Female
  Weight: 84 kg

DRUGS (3)
  1. HURRICAINE SPRAY 20% BENZOCAINE BEUTLICH PHARMACEUTICALS [Suspect]
     Indication: ECHOCARDIOGRAM
     Dosage: UNKNOWN HOW MANY SPRAYS    TOP
     Route: 061
     Dates: start: 20070116
  2. VERSED [Concomitant]
  3. FENTANYL [Concomitant]

REACTIONS (5)
  - HYPOTENSION [None]
  - LABORATORY TEST ABNORMAL [None]
  - OXYGEN SATURATION DECREASED [None]
  - POST PROCEDURAL COMPLICATION [None]
  - TACHYCARDIA [None]
